FAERS Safety Report 7317295-7 (Version None)
Quarter: 2011Q1

REPORT INFORMATION
  Report Type: 
  Country: None (occurrence: None)
  Receive Date: 20110226
  Receipt Date: 20101018
  Transmission Date: 20110831
  Serious: No
  Sender: FDA-Public Use
  Company Number: US-ALLERGAN-1013379US

PATIENT
  Age: 57 Year
  Sex: Female

DRUGS (2)
  1. BOTOXA? [Suspect]
     Indication: MUSCLE SPASMS
     Dosage: 4 UNITS, SINGLE
     Dates: start: 20100121, end: 20100121
  2. BOTOXA? [Suspect]
     Dosage: UNK
     Dates: start: 20100316, end: 20100316

REACTIONS (2)
  - INJECTION SITE PAIN [None]
  - DRUG INEFFECTIVE [None]
